FAERS Safety Report 5062460-5 (Version None)
Quarter: 2006Q3

REPORT INFORMATION
  Report Type: 
  Country: None (occurrence: None)
  Receive Date: 20060721
  Receipt Date: 20060713
  Transmission Date: 20061208
  Serious: Yes (Other)
  Sender: FDA-Public Use
  Company Number: 14380

PATIENT
  Age: 87 Year
  Sex: Female

DRUGS (1)
  1. AMIODARONE HCL [Suspect]
     Indication: ATRIAL FIBRILLATION
     Dosage: 200 MG QD

REACTIONS (5)
  - CATARACT NUCLEAR [None]
  - CORNEAL LESION [None]
  - DISEASE RECURRENCE [None]
  - KERATOPATHY [None]
  - POST PROCEDURAL COMPLICATION [None]
